FAERS Safety Report 18476010 (Version 1)
Quarter: 2020Q4

REPORT INFORMATION
  Report Type: Spontaneous
  Country: US (occurrence: US)
  Receive Date: 20201106
  Receipt Date: 20201106
  Transmission Date: 20210114
  Serious: No
  Sender: FDA-Public Use
  Company Number: US-PERRIGO-20US008398

PATIENT

DRUGS (1)
  1. DOXYLAMINE SUCCINATE. [Suspect]
     Active Substance: DOXYLAMINE SUCCINATE
     Indication: INSOMNIA
     Dosage: 12.5 MG, TWICE IN A FEW DAYS
     Route: 048
     Dates: start: 202006, end: 202006

REACTIONS (12)
  - Decreased appetite [Unknown]
  - Palpitations [Unknown]
  - Vision blurred [Unknown]
  - Somnolence [Unknown]
  - Tremor [Recovered/Resolved]
  - Drug ineffective [Unknown]
  - Underdose [Recovered/Resolved]
  - Formication [Unknown]
  - Feeling abnormal [Unknown]
  - Nausea [Unknown]
  - Tachyphrenia [Unknown]
  - Panic attack [Unknown]

NARRATIVE: CASE EVENT DATE: 202006
